FAERS Safety Report 17319868 (Version 1)
Quarter: 2020Q1

REPORT INFORMATION
  Report Type: Spontaneous
  Country: US (occurrence: US)
  Receive Date: 20200126
  Receipt Date: 20200126
  Transmission Date: 20200409
  Serious: Yes (Other)
  Sender: FDA-Public Use
  Company Number: US-009507513-2001USA007344

PATIENT
  Age: 22 Year
  Sex: Female
  Weight: 58.95 kg

DRUGS (4)
  1. TRYPTANOL [Suspect]
     Active Substance: AMITRIPTYLINE
     Indication: INSOMNIA
     Dosage: 250 MILLIGRAM, PM (AT NIGHT)
  2. LAMOTRIGINE. [Suspect]
     Active Substance: LAMOTRIGINE
     Indication: INSOMNIA
     Dosage: 75 MILLIGRAM, PM (NIGHT)
  3. REMERON [Suspect]
     Active Substance: MIRTAZAPINE
     Indication: INSOMNIA
     Dosage: 90 MILLIGRAM, PM (AT NIGHT)
  4. CLONIDINE. [Suspect]
     Active Substance: CLONIDINE
     Indication: INSOMNIA
     Dosage: 0.3 MILLIGRAM, PM (NIGHT)

REACTIONS (8)
  - Thinking abnormal [Unknown]
  - Contusion [Unknown]
  - Seizure [Unknown]
  - Eye movement disorder [Unknown]
  - Muscle spasms [Unknown]
  - Fall [Unknown]
  - Dyskinesia [Unknown]
  - Amnesia [Unknown]
